FAERS Safety Report 10332691 (Version 1)
Quarter: 2014Q3

REPORT INFORMATION
  Report Type: Spontaneous
  Country: US (occurrence: US)
  Receive Date: 20140722
  Receipt Date: 20140722
  Transmission Date: 20150326
  Serious: No
  Sender: FDA-Public Use
  Company Number: US-ASTRAZENECA-2013SE93144

PATIENT
  Age: 61 Year
  Sex: Male
  Weight: 91.2 kg

DRUGS (6)
  1. SEROQUEL [Suspect]
     Active Substance: QUETIAPINE FUMARATE
     Indication: BIPOLAR DISORDER
     Route: 048
     Dates: start: 2012
  2. DEPAKOTE [Concomitant]
     Active Substance: DIVALPROEX SODIUM
  3. SEROQUEL [Suspect]
     Active Substance: QUETIAPINE FUMARATE
     Indication: BIPOLAR DISORDER
     Route: 048
     Dates: start: 2012
  4. AMBIEN [Suspect]
     Active Substance: ZOLPIDEM TARTRATE
     Indication: SLEEP DISORDER
     Route: 065
  5. DEPAKOTE [Concomitant]
     Active Substance: DIVALPROEX SODIUM
  6. SEROQUEL [Suspect]
     Active Substance: QUETIAPINE FUMARATE
     Indication: BIPOLAR DISORDER
     Route: 048
     Dates: start: 2012

REACTIONS (10)
  - Weight increased [Unknown]
  - Appetite disorder [Unknown]
  - Stress [Unknown]
  - Joint injury [Unknown]
  - Insomnia [Unknown]
  - Fall [Unknown]
  - Decreased appetite [Unknown]
  - Wound [Unknown]
  - Somnambulism [Unknown]
  - Agitation [Unknown]
